FAERS Safety Report 17800235 (Version 1)
Quarter: 2020Q2

REPORT INFORMATION
  Report Type: Report from Study
  Country: US (occurrence: US)
  Receive Date: 20200518
  Receipt Date: 20200518
  Transmission Date: 20200714
  Serious: Yes (Hospitalization)
  Sender: FDA-Public Use
  Company Number: US-BIOGEN-2020BI00873552

PATIENT
  Sex: Female

DRUGS (2)
  1. TECFIDERA [Suspect]
     Active Substance: DIMETHYL FUMARATE
     Indication: MULTIPLE SCLEROSIS
     Route: 065
     Dates: start: 20200304, end: 20200428
  2. KEPPRA [Concomitant]
     Active Substance: LEVETIRACETAM
     Indication: PRODUCT USED FOR UNKNOWN INDICATION
     Route: 065

REACTIONS (7)
  - Seizure [Recovered/Resolved]
  - Constipation [Unknown]
  - Hypertension [Recovered/Resolved]
  - Pain [Recovered/Resolved]
  - Loss of control of legs [Unknown]
  - Dyskinesia [Recovered/Resolved]
  - Diarrhoea [Unknown]
